FAERS Safety Report 6096456-1 (Version None)
Quarter: 2009Q1

REPORT INFORMATION
  Report Type: 
  Country: None (occurrence: None)
  Receive Date: 20090227
  Receipt Date: 20090102
  Transmission Date: 20090719
  Serious: No
  Sender: FDA-Public Use
  Company Number: A0762051A

PATIENT
  Sex: Female

DRUGS (2)
  1. LAMICTAL [Suspect]
     Dosage: 150MG PER DAY
     Route: 048
     Dates: end: 20081229
  2. UNKNOWN [Concomitant]

REACTIONS (1)
  - RASH [None]
